FAERS Safety Report 18634232 (Version 1)
Quarter: 2020Q4

REPORT INFORMATION
  Report Type: Spontaneous
  Country: US (occurrence: US)
  Receive Date: 20201218
  Receipt Date: 20201218
  Transmission Date: 20210114
  Serious: Yes (Death)
  Sender: FDA-Public Use
  Company Number: US-009507513-2012USA008443

PATIENT
  Age: 37 Year
  Sex: Female

DRUGS (6)
  1. REMERON [Suspect]
     Active Substance: MIRTAZAPINE
     Dosage: UNK, ROUTE: REPORTED AS INGESTION
     Route: 048
  2. METHAMPHETAMINE HYDROCHLORIDE. [Suspect]
     Active Substance: METHAMPHETAMINE HYDROCHLORIDE
     Dosage: UNK, ROUTE: REPORTED AS INGESTION
     Route: 048
  3. CLONIDINE. [Suspect]
     Active Substance: CLONIDINE
     Dosage: UNK, ROUTE: REPORTED AS INGESTION
     Route: 048
  4. BUSPIRONE HYDROCHLORIDE. [Suspect]
     Active Substance: BUSPIRONE HYDROCHLORIDE
     Dosage: UNK, ROUTE: REPORTED AS INGESTION
     Route: 048
  5. TRAZODONE HYDROCHLORIDE. [Suspect]
     Active Substance: TRAZODONE HYDROCHLORIDE
     Dosage: UNK, ROUTE: REPORTED AS INGESTION
     Route: 048
  6. IBUPROFEN. [Suspect]
     Active Substance: IBUPROFEN
     Dosage: UNK, ROUTE: REPORTED AS INGESTION
     Route: 048

REACTIONS (1)
  - Adverse event [Fatal]
